FAERS Safety Report 12221688 (Version 1)
Quarter: 2016Q1

REPORT INFORMATION
  Report Type: Spontaneous
  Country: US (occurrence: US)
  Receive Date: 20160330
  Receipt Date: 20160330
  Transmission Date: 20160526
  Serious: No
  Sender: FDA-Public Use
  Company Number: US-PERRIGO-13US008851

PATIENT
  Sex: Female

DRUGS (2)
  1. GOOD SENSE COMPLETE [Suspect]
     Active Substance: CALCIUM CARBONATE\FAMOTIDINE\MAGNESIUM HYDROXIDE
     Indication: GASTROOESOPHAGEAL REFLUX DISEASE
     Dosage: LESS THAN ONE TABLET, QD
     Route: 048
     Dates: start: 2009
  2. GOOD SENSE COMPLETE [Suspect]
     Active Substance: CALCIUM CARBONATE\FAMOTIDINE\MAGNESIUM HYDROXIDE
     Indication: FLATULENCE
     Dosage: ONE TABLET, QD
     Route: 048
     Dates: start: 2009, end: 2009

REACTIONS (7)
  - Haematochezia [Unknown]
  - Incorrect drug administration duration [Unknown]
  - Off label use [Unknown]
  - Faeces discoloured [Unknown]
  - Wrong technique in product usage process [None]
  - Underdose [Unknown]
  - Somnolence [Recovered/Resolved]

NARRATIVE: CASE EVENT DATE: 2009
